FAERS Safety Report 14260746 (Version 1)
Quarter: 2017Q4

REPORT INFORMATION
  Report Type: Spontaneous
  Country: US (occurrence: US)
  Receive Date: 20171207
  Receipt Date: 20171207
  Transmission Date: 20180321
  Serious: Yes (Death, Hospitalization, Other)
  Sender: FDA-Public Use
  Company Number: US-GLAXOSMITHKLINE-US2017GSK183887

PATIENT
  Age: 25 Year
  Sex: Male

DRUGS (7)
  1. NICOTINE. [Suspect]
     Active Substance: NICOTINE
  2. COCAINE [Suspect]
     Active Substance: COCAINE
  3. BENZODIAZEPINE [Suspect]
     Active Substance: BENZODIAZEPINE
  4. LEVAMISOLE [Suspect]
     Active Substance: LEVAMISOLE
  5. CAFFEINE. [Suspect]
     Active Substance: CAFFEINE
  6. ALPRAZOLAM. [Suspect]
     Active Substance: ALPRAZOLAM
  7. MARIJUANA [Suspect]
     Active Substance: CANNABIS SATIVA SUBSP. INDICA TOP
     Dosage: UNK

REACTIONS (2)
  - Death [Fatal]
  - Cardio-respiratory arrest [Unknown]
